FAERS Safety Report 10210714 (Version 1)
Quarter: 2014Q2

REPORT INFORMATION
  Report Type: Spontaneous
  Country: CH (occurrence: CH)
  Receive Date: 20140602
  Receipt Date: 20140602
  Transmission Date: 20141212
  Serious: Yes (Other)
  Sender: FDA-Public Use
  Company Number: PHHY2014CH063001

PATIENT
  Sex: Male
  Weight: 14 kg

DRUGS (1)
  1. MYCOPHENOLATE MOFETIL [Suspect]
     Dosage: 500 MG (179.2 MG/KG)
     Route: 048

REACTIONS (2)
  - Toxicity to various agents [Unknown]
  - Accidental overdose [Unknown]
